FAERS Safety Report 6336554-8 (Version None)
Quarter: 2009Q3

REPORT INFORMATION
  Report Type: 
  Country: None (occurrence: None)
  Receive Date: 20090901
  Receipt Date: 20090831
  Transmission Date: 20100115
  Serious: Yes (Death)
  Sender: FDA-Public Use
  Company Number: JP-JNJFOC-20090806772

PATIENT
  Sex: Female

DRUGS (10)
  1. DUROTEP MT PATCH [Suspect]
     Route: 062
  2. DUROTEP MT PATCH [Suspect]
     Route: 062
  3. DUROTEP MT PATCH [Suspect]
     Indication: CANCER PAIN
     Route: 062
  4. MORPHINE HYDROCHLORIDE [Concomitant]
     Route: 042
  5. MORPHINE HYDROCHLORIDE [Concomitant]
     Route: 042
  6. MORPHINE HYDROCHLORIDE [Concomitant]
     Indication: CANCER PAIN
     Route: 042
  7. SANDOSTATIN [Concomitant]
     Route: 042
  8. RINDERON [Concomitant]
     Route: 042
  9. VINORELBINE TARTRATE [Concomitant]
     Route: 042
  10. VINORELBINE TARTRATE [Concomitant]
     Route: 042

REACTIONS (1)
  - BREAST CANCER [None]
